FAERS Safety Report 4476864-2 (Version None)
Quarter: 2004Q4

REPORT INFORMATION
  Report Type: 
  Country: None (occurrence: None)
  Receive Date: 20041013
  Receipt Date: 20040929
  Transmission Date: 20050328
  Serious: Yes (Death, Hospitalization, Other)
  Sender: FDA-Public Use
  Company Number: 430028M03USA

PATIENT
  Age: 43 Year
  Sex: Female

DRUGS (1)
  1. NOVANTRONE [Suspect]
     Indication: MULTIPLE SCLEROSIS
     Dosage: 10 MG/M2, 1 IN 3 MONTHS
     Dates: start: 20010401, end: 20020801

REACTIONS (6)
  - ACUTE MYELOID LEUKAEMIA [None]
  - LABORATORY TEST ABNORMAL [None]
  - MARROW HYPERPLASIA [None]
  - MUCOSAL INFLAMMATION [None]
  - PANCYTOPENIA [None]
  - PSEUDOMONAL SEPSIS [None]
